FAERS Safety Report 7312301-8 (Version None)
Quarter: 2011Q1

REPORT INFORMATION
  Report Type: 
  Country: None (occurrence: None)
  Receive Date: 20110224
  Receipt Date: 20110123
  Transmission Date: 20110831
  Serious: Yes (Hospitalization)
  Sender: FDA-Public Use
  Company Number: B0701666A

PATIENT
  Age: 44 Year
  Sex: Female

DRUGS (2)
  1. CAPECITABINE [Concomitant]
     Dosage: 3500MG PER DAY
  2. TYKERB [Suspect]
     Route: 065

REACTIONS (3)
  - PARAPLEGIA [None]
  - PNEUMONIA [None]
  - MUCOSAL INFLAMMATION [None]
